FAERS Safety Report 4494539-0 (Version None)
Quarter: 2004Q4

REPORT INFORMATION
  Report Type: 
  Country: None (occurrence: None)
  Receive Date: 20041103
  Receipt Date: 20041019
  Transmission Date: 20050328
  Serious: Yes (Hospitalization)
  Sender: FDA-Public Use
  Company Number: GBR-2004-0001316

PATIENT
  Age: 57 Year
  Sex: Male

DRUGS (3)
  1. OXYCODONE HYDROCHLORIDE(OXYCODONE HYDROCHLORIDE) [Suspect]
     Indication: PAIN
     Dosage: DAILY
  2. PARACETAMOL (PARACETAMOL) [Suspect]
     Indication: PAIN
     Dosage: DAILY, ORAL
     Route: 048
  3. PHENAZOCINE (PHENAZOCINE) [Suspect]
     Indication: PAIN
     Dosage: 60 MG, DAILY, ORAL
     Route: 048

REACTIONS (2)
  - ANGIONEUROTIC OEDEMA [None]
  - URTICARIA [None]
